FAERS Safety Report 8182756 (Version 7)
Quarter: 2013Q4

REPORT INFORMATION
  Report Type: Spontaneous
  Country: FR (occurrence: FR)
  Receive Date: 20111017
  Receipt Date: 20131017
  Transmission Date: 20140711
  Serious: Yes (Life-Threatening, Hospitalization, Other)
  Sender: FDA-Public Use
  Company Number: FR-PFIZER INC-2011127260

PATIENT
  Age: 36 Year
  Sex: Male
  Weight: 105 kg

DRUGS (8)
  1. SOLU-MEDROL [Suspect]
     Indication: THROMBOCYTOPENIC PURPURA
     Dosage: 80 MG, 1X/DAY
     Dates: start: 20081124, end: 20081219
  2. SOLU-MEDROL [Suspect]
     Dosage: 60 MG, 1X/DAY
  3. CORTANCYL [Suspect]
     Indication: THROMBOCYTOPENIC PURPURA
     Dosage: 60 MG, 1X/DAY
     Route: 048
     Dates: start: 200811, end: 20081219
  4. CORTANCYL [Suspect]
     Dosage: 80 MG, 1X/DAY
     Route: 048
     Dates: start: 20081129
  5. CORTANCYL [Suspect]
     Dosage: 10 MG, 1X/DAY
     Route: 048
  6. SOLUPRED [Suspect]
     Dosage: 60 MG, UNK
     Route: 048
     Dates: start: 200811, end: 20081219
  7. LAMICTAL [Concomitant]
     Indication: EPILEPSY
     Dosage: 200 MG, 1X/DAY
  8. RIVOTRIL [Concomitant]
     Indication: EPILEPSY
     Dosage: 2 MG, 1X/DAY

REACTIONS (23)
  - Coma [Recovered/Resolved]
  - Thrombocytopenic purpura [Unknown]
  - Hypokinesia [Unknown]
  - Status epilepticus [Unknown]
  - Visual acuity reduced [Recovered/Resolved]
  - Fall [Unknown]
  - Haematoma [Unknown]
  - Gait disturbance [Unknown]
  - Myopathy [Recovered/Resolved]
  - Headache [Unknown]
  - Activities of daily living impaired [Unknown]
  - Muscle rupture [Unknown]
  - Quadriparesis [Unknown]
  - Sleep apnoea syndrome [Not Recovered/Not Resolved]
  - Weight increased [Unknown]
  - Back pain [Unknown]
  - Spinal pain [Not Recovered/Not Resolved]
  - Central obesity [Unknown]
  - Panic attack [Unknown]
  - Paraesthesia [Unknown]
  - Vertigo [Unknown]
  - Restlessness [Unknown]
  - Aggression [Recovered/Resolved]
